FAERS Safety Report 7709233 (Version 2)
Quarter: 2012Q4

REPORT INFORMATION
  Report Type: 
  Country: US (occurrence: US)
  Receive Date: 20101214
  Receipt Date: 20121120
  Transmission Date: 20130627
  Serious: No
  Sender: FDA-Public Use
  Company Number: US-ASTRAZENECA-2010SE32761

PATIENT
  Age: 69 Year
  Sex: Female

DRUGS (22)
  1. NEXIUM [Suspect]
     Indication: DYSPEPSIA
     Route: 048
  2. CRESTOR [Suspect]
     Indication: BLOOD CHOLESTEROL INCREASED
     Route: 048
  3. NAPROXEN [Suspect]
     Route: 065
  4. TRICOR [Concomitant]
     Indication: BLOOD TRIGLYCERIDES INCREASED
  5. NIASPAN [Concomitant]
  6. ALLOPURINOL [Concomitant]
     Indication: RENAL LITHIASIS PROPHYLAXIS
  7. LOVAZA [Concomitant]
     Indication: BLOOD TRIGLYCERIDES INCREASED
  8. FUROSEMIDE [Concomitant]
     Indication: OLIGURIA
  9. APIDRA (INSULIN) [Concomitant]
     Indication: DIABETES MELLITUS
     Dosage: VARIES 3 TIMES
  10. METOPROLOL [Concomitant]
     Indication: HYPERTENSION
  11. ASPIRIN (COATED) [Concomitant]
     Indication: ANTICOAGULANT THERAPY
  12. LANTUS (INSULIN) [Concomitant]
     Indication: DIABETES MELLITUS
     Dosage: VARIES ONCE
  13. AMITRIPTYLINE [Concomitant]
     Indication: SLEEP DISORDER
  14. LISINOPRIL [Concomitant]
     Indication: HYPERTENSION
  15. MULTIVITAMIN FOR SENIORS [Concomitant]
     Dosage: TWO TIMES
  16. CALCIUM + D [Concomitant]
     Dosage: 600 MG/125 IU, YWO TIMES A DAY
  17. GLUCOSAMINE [Concomitant]
  18. CHONDROITIN [Concomitant]
  19. CINNAMON [Concomitant]
  20. GARLIC [Concomitant]
  21. VITAMIN D [Concomitant]
  22. COENZYME Q10 [Concomitant]

REACTIONS (9)
  - Type 2 diabetes mellitus [Unknown]
  - Nephrolithiasis [Unknown]
  - Hypertension [Unknown]
  - Ulcer [Unknown]
  - Blood triglycerides increased [Unknown]
  - Blood cholesterol increased [Unknown]
  - Abdominal discomfort [Unknown]
  - Sleep disorder [Unknown]
  - Intentional drug misuse [Unknown]
